FAERS Safety Report 24212441 (Version 1)
Quarter: 2024Q3

REPORT INFORMATION
  Report Type: Report from Study
  Country: US (occurrence: None)
  Receive Date: 20240815
  Receipt Date: 20240815
  Transmission Date: 20241016
  Serious: Yes (Other)
  Sender: ASTRAZENECA
  Company Number: 2022A148806

PATIENT
  Sex: Female

DRUGS (1)
  1. LYNPARZA [Suspect]
     Active Substance: OLAPARIB
     Indication: Malignant peritoneal neoplasm
     Route: 048

REACTIONS (6)
  - Fall [Unknown]
  - Joint dislocation [Unknown]
  - Tibia fracture [Unknown]
  - Fibula fracture [Unknown]
  - Foot fracture [Unknown]
  - Dizziness [Unknown]
